FAERS Safety Report 10220331 (Version 3)
Quarter: 2014Q2

REPORT INFORMATION
  Report Type: Report from Study
  Country: CA (occurrence: CA)
  Receive Date: 20140606
  Receipt Date: 20140610
  Transmission Date: 20141212
  Serious: Yes (Other)
  Sender: FDA-Public Use
  Company Number: CA-ROCHE-1273649

PATIENT
  Age: 73 Year
  Sex: Female
  Weight: 68 kg

DRUGS (11)
  1. RITUXAN [Suspect]
     Indication: RHEUMATOID ARTHRITIS
     Dosage: FREQUENCY : DAY 1 AND 15.
     Route: 042
     Dates: start: 20130909
  2. CELEBREX [Concomitant]
  3. ARAVA [Concomitant]
  4. RAMIPRIL [Concomitant]
  5. TYLENOL [Concomitant]
     Indication: ARTHRITIS
  6. PRIMROSE [Concomitant]
  7. OMEGA 3 [Concomitant]
  8. CRANBERRY [Concomitant]
  9. DIPHENHYDRAMINE HCL [Concomitant]
     Route: 048
     Dates: start: 20130909
  10. ACETAMINOPHEN [Concomitant]
     Route: 048
     Dates: start: 20130909
  11. METHYLPREDNISOLONE [Concomitant]
     Route: 042
     Dates: start: 20130909

REACTIONS (7)
  - Hepatitis B virus test positive [Not Recovered/Not Resolved]
  - White blood cells urine positive [Not Recovered/Not Resolved]
  - Peripheral swelling [Unknown]
  - Psoriasis [Not Recovered/Not Resolved]
  - Nitrite urine present [Not Recovered/Not Resolved]
  - Infusion related reaction [Unknown]
  - Musculoskeletal pain [Unknown]
